FAERS Safety Report 8314428-0 (Version None)
Quarter: 2012Q2

REPORT INFORMATION
  Report Type: 
  Country: None (occurrence: None)
  Receive Date: 20120426
  Receipt Date: 20120417
  Transmission Date: 20120825
  Serious: Yes (Hospitalization)
  Sender: FDA-Public Use
  Company Number: US-ASTRAZENECA-2011SE26452

PATIENT
  Age: 51 Year
  Sex: Female
  Weight: 68 kg

DRUGS (6)
  1. SEROQUEL XR [Suspect]
     Indication: BIPOLAR DISORDER
     Route: 048
     Dates: start: 20010101, end: 20110101
  2. KLONOPIN [Concomitant]
  3. ESTROGEN [Concomitant]
  4. PREDNISONE TAB [Concomitant]
  5. SEROQUEL XR [Suspect]
     Route: 048
     Dates: start: 20110101
  6. SPIRIVA [Concomitant]

REACTIONS (4)
  - INTENTIONAL DRUG MISUSE [None]
  - CHRONIC OBSTRUCTIVE PULMONARY DISEASE [None]
  - SOMNOLENCE [None]
  - AGGRESSION [None]
